FAERS Safety Report 23527043 (Version 1)
Quarter: 2024Q1

REPORT INFORMATION
  Report Type: Report from Study
  Country: US (occurrence: US)
  Receive Date: 20240215
  Receipt Date: 20240215
  Transmission Date: 20240410
  Serious: Yes (Death)
  Sender: FDA-Public Use
  Company Number: US-AMX-007489

PATIENT
  Age: 75 Year
  Sex: Male

DRUGS (2)
  1. RELYVRIO [Suspect]
     Active Substance: SODIUM PHENYLBUTYRATE\TAURURSODIOL
     Indication: Amyotrophic lateral sclerosis
     Dosage: 1 SACHET ONCE DAILY FOR FIRST 3 WEEKS THEN ONE SACHET TWICE DAILY
     Route: 048
     Dates: start: 202311
  2. RADICAVA ORS [Concomitant]
     Active Substance: EDARAVONE
     Indication: Product used for unknown indication
     Dosage: BY MOUTH OR FEEDING TUBE 1 TIME A DAY FOR 10 OUT OF 14 DAYS THEN 14 DAYS OFF

REACTIONS (1)
  - Death [Fatal]
